FAERS Safety Report 22284742 (Version 1)
Quarter: 2023Q2

REPORT INFORMATION
  Report Type: Report from Study
  Country: AR (occurrence: AR)
  Receive Date: 20230504
  Receipt Date: 20230504
  Transmission Date: 20230722
  Serious: Yes (Other)
  Sender: FDA-Public Use
  Company Number: AR-JNJFOC-20230465868

PATIENT
  Age: 46 Year
  Sex: Male
  Weight: 100 kg

DRUGS (1)
  1. REMICADE [Suspect]
     Active Substance: INFLIXIMAB
     Indication: Colitis ulcerative
     Route: 041
     Dates: start: 20170621

REACTIONS (3)
  - Choking [Unknown]
  - Infusion related reaction [Unknown]
  - Erythema [Unknown]

NARRATIVE: CASE EVENT DATE: 20230426
